FAERS Safety Report 6520706-8 (Version None)
Quarter: 2009Q4

REPORT INFORMATION
  Report Type: 
  Country: None (occurrence: None)
  Receive Date: 20091229
  Receipt Date: 20091211
  Transmission Date: 20100525
  Serious: Yes (Other)
  Sender: FDA-Public Use
  Company Number: FR-JNJFOC-20091204458

PATIENT
  Sex: Female

DRUGS (2)
  1. INTELENCE [Suspect]
     Indication: HIV INFECTION
     Route: 048
  2. NUCLEOSIDE REVERSE TRANSCRIPTASE INHIBITORS [Concomitant]
     Indication: HIV INFECTION

REACTIONS (1)
  - ERYTHEMA NODOSUM [None]
